FAERS Safety Report 21973147 (Version 1)
Quarter: 2023Q1

REPORT INFORMATION
  Report Type: Report from Study
  Country: HU (occurrence: HU)
  Receive Date: 20230209
  Receipt Date: 20230209
  Transmission Date: 20230418
  Serious: Yes (Death, Other)
  Sender: FDA-Public Use
  Company Number: HU-002147023-NVSC2023HU029179

PATIENT
  Sex: Female

DRUGS (1)
  1. KISQALI [Suspect]
     Active Substance: RIBOCICLIB
     Indication: Product used for unknown indication
     Dosage: UNK
     Route: 065

REACTIONS (6)
  - Death [Fatal]
  - Ileus [Unknown]
  - Metastases to bone [Unknown]
  - Metastases to liver [Unknown]
  - Breast neoplasm [Unknown]
  - Asthenia [Unknown]

NARRATIVE: CASE EVENT DATE: 20230207
